FAERS Safety Report 10360079 (Version 1)
Quarter: 2014Q3

REPORT INFORMATION
  Report Type: Spontaneous
  Country: US (occurrence: None)
  Receive Date: 20140801
  Receipt Date: 20140801
  Transmission Date: 20150326
  Serious: Yes (Hospitalization)
  Sender: FDA-Public Use
  Company Number: None

PATIENT
  Age: 79 Year
  Sex: Female
  Weight: 88 kg

DRUGS (23)
  1. FERROUS SULFATE [Concomitant]
     Active Substance: FERROUS SULFATE\FERROUS SULFATE, DRIED
  2. ROSUVASTATIN [Concomitant]
     Active Substance: ROSUVASTATIN
  3. VITAMIN A [Concomitant]
     Active Substance: VITAMIN A
  4. PHYOSTEROL ESTERS [Concomitant]
  5. ASCORBIC ACID. [Concomitant]
     Active Substance: ASCORBIC ACID
  6. CRANBERRY. [Concomitant]
     Active Substance: CRANBERRY
  7. SULFAMETHOXAZOLE/TRIMETHOPRIM 800/160 [Suspect]
     Active Substance: SULFAMETHOXAZOLE\TRIMETHOPRIM
     Indication: URINARY TRACT INFECTION
     Dosage: THERAPY?APPROX 2 DAYS PRIOR TO ADMISSION
     Route: 048
  8. LUTEIN [Concomitant]
     Active Substance: LUTEIN
  9. VITAMIN B COMPLEX [Concomitant]
     Active Substance: CYANOCOBALAMIN\DEXPANTHENOL\NIACINAMIDE\PYRIDOXINE HYDROCHLORIDE\RIBOFLAVIN 5^-PHOSPHATE SODIUM\THIAMINE HYDROCHLORIDE\VITAMIN B COMPLEX
  10. TIZANIDINE [Concomitant]
     Active Substance: TIZANIDINE
  11. OMEGA 3 FATTY ACID [Concomitant]
     Active Substance: OMEGA-3 FATTY ACIDS
  12. GABAPENTIN. [Concomitant]
     Active Substance: GABAPENTIN
  13. CALCIUM-MAGNESIUM-ZINC [Concomitant]
  14. CHOLECALCIFEROL [Concomitant]
     Active Substance: CHOLECALCIFEROL
  15. LOSARTAN/HCTZ [Concomitant]
     Active Substance: HYDROCHLOROTHIAZIDE\LOSARTAN
  16. PSYLLIUM [Concomitant]
     Active Substance: PLANTAGO SEED
  17. METFORMIN [Concomitant]
     Active Substance: METFORMIN HYDROCHLORIDE
  18. COENZYME Q10 [Concomitant]
     Active Substance: UBIDECARENONE
  19. CALCIUM ASCORBATE [Concomitant]
     Active Substance: CALCIUM ASCORBATE
  20. LACTOBACILLUS [Concomitant]
     Active Substance: LACTOBACILLUS ACIDOPHILUS
  21. D-MANNOSE [Concomitant]
  22. ASPIRIN. [Concomitant]
     Active Substance: ASPIRIN
  23. CETIRIZINE [Concomitant]
     Active Substance: CETIRIZINE HYDROCHLORIDE

REACTIONS (5)
  - Hyponatraemia [None]
  - Hypophagia [None]
  - Renal failure acute [None]
  - Dehydration [None]
  - Guillain-Barre syndrome [None]

NARRATIVE: CASE EVENT DATE: 20140118
